FAERS Safety Report 9266936 (Version 2)
Quarter: 2013Q2

REPORT INFORMATION
  Report Type: Spontaneous
  Country: US (occurrence: US)
  Receive Date: 20130502
  Receipt Date: 20130520
  Transmission Date: 20140414
  Serious: No
  Sender: FDA-Public Use
  Company Number: US-PFIZER INC-2013132733

PATIENT
  Age: 71 Year
  Sex: Female

DRUGS (5)
  1. AROMASIN [Suspect]
     Indication: BREAST DISORDER
     Dosage: 25 MG, 1X/DAY
     Dates: start: 20130205
  2. AROMASIN [Suspect]
     Dosage: 25 MG, UNK
     Dates: start: 20130224, end: 20130425
  3. METFORMIN [Concomitant]
     Dosage: 500 MG, 1X/DAY
     Dates: start: 20130211
  4. ZOCOR [Concomitant]
     Dosage: 20 MG, 1X/DAY
     Dates: start: 20130211
  5. LASIX [Concomitant]
     Dosage: 60 MG, 1X/DAY
     Dates: start: 20120315

REACTIONS (1)
  - Alopecia [Unknown]
